FAERS Safety Report 24645405 (Version 2)
Quarter: 2025Q2

REPORT INFORMATION
  Report Type: Spontaneous
  Country: US (occurrence: US)
  Receive Date: 20241121
  Receipt Date: 20250607
  Transmission Date: 20250717
  Serious: No
  Sender: COHERUS
  Company Number: US-Coherus Biosciences INC.2024-COH-US000133

PATIENT

DRUGS (8)
  1. UDENYCA [Suspect]
     Active Substance: PEGFILGRASTIM-CBQV
     Indication: Prophylaxis
     Dosage: 6 MG, Q3WEEKS
     Route: 058
     Dates: start: 20240122
  2. RUXIENCE [Concomitant]
     Active Substance: RITUXIMAB-PVVR
  3. PREDNISONE [Concomitant]
     Active Substance: PREDNISONE
  4. CYCLOPHOSPHAMIDE [Concomitant]
     Active Substance: CYCLOPHOSPHAMIDE
  5. ETOPOSIDE [Concomitant]
     Active Substance: ETOPOSIDE
  6. VINCRISTINE [Concomitant]
     Active Substance: VINCRISTINE
  7. GRANISETRON [Concomitant]
     Active Substance: GRANISETRON
  8. DOXORUBICIN [Concomitant]
     Active Substance: DOXORUBICIN

REACTIONS (2)
  - Accidental exposure to product [Recovered/Resolved]
  - Product quality issue [Recovered/Resolved]

NARRATIVE: CASE EVENT DATE: 20240122
